FAERS Safety Report 7640822-7 (Version None)
Quarter: 2011Q3

REPORT INFORMATION
  Report Type: 
  Country: None (occurrence: None)
  Receive Date: 20110728
  Receipt Date: 20110608
  Transmission Date: 20111222
  Serious: No
  Sender: FDA-Public Use
  Company Number: US-MUTUAL PHARMACEUTICAL COMPANY, INC.-CLCY20110071

PATIENT
  Sex: Female

DRUGS (5)
  1. AMITRIPTYLINE HCL [Concomitant]
     Indication: NEURALGIA
     Route: 048
  2. SYNTHROID [Concomitant]
     Indication: HYPOTHYROIDISM
     Route: 048
  3. OXYCONTIN [Concomitant]
     Indication: NEURALGIA
     Route: 048
  4. COLCRYS [Suspect]
     Indication: CONSTIPATION
     Route: 048
     Dates: start: 20110604, end: 20110607
  5. TOPAMAX [Concomitant]
     Indication: NEURALGIA
     Route: 048

REACTIONS (3)
  - OFF LABEL USE [None]
  - HYPOAESTHESIA [None]
  - PARAESTHESIA [None]
